FAERS Safety Report 6078947-2 (Version None)
Quarter: 2009Q1

REPORT INFORMATION
  Report Type: 
  Country: None (occurrence: None)
  Receive Date: 20090216
  Receipt Date: 20090202
  Transmission Date: 20090719
  Serious: Yes (Hospitalization, Other)
  Sender: FDA-Public Use
  Company Number: CA-ELI_LILLY_AND_COMPANY-CA200902000754

PATIENT
  Age: 89 Year
  Sex: Female

DRUGS (7)
  1. FORTEO [Suspect]
     Indication: OSTEOPOROSIS
     Dosage: 20 UG, DAILY (1/D)
     Route: 058
     Dates: start: 20081114, end: 20090126
  2. ALTACE [Concomitant]
  3. TYLENOL                                 /SCH/ [Concomitant]
     Dosage: UNK, AS NEEDED
  4. ASAPHEN [Concomitant]
  5. SYNTHROID [Concomitant]
  6. CRESTOR [Concomitant]
  7. PREVACID [Concomitant]

REACTIONS (1)
  - ARRHYTHMIA [None]
